FAERS Safety Report 6647679-1 (Version None)
Quarter: 2010Q1

REPORT INFORMATION
  Report Type: 
  Country: None (occurrence: None)
  Receive Date: 20100323
  Receipt Date: 20100323
  Transmission Date: 20100710
  Serious: Yes (Other)
  Sender: FDA-Public Use
  Company Number: None

PATIENT
  Age: 22 Year
  Sex: Female
  Weight: 56.6996 kg

DRUGS (2)
  1. EFFEXOR XR [Suspect]
     Indication: ANXIETY
     Dosage: 150MG 2XDAILY OVER 1 YEAR
  2. EFFEXOR XR [Suspect]
     Indication: DEPRESSION
     Dosage: 150MG 2XDAILY OVER 1 YEAR

REACTIONS (4)
  - CRYING [None]
  - DRUG WITHDRAWAL SYNDROME [None]
  - NAUSEA [None]
  - TREATMENT NONCOMPLIANCE [None]
